FAERS Safety Report 15279204 (Version 1)
Quarter: 2018Q3

REPORT INFORMATION
  Report Type: Spontaneous
  Country: US (occurrence: US)
  Receive Date: 20180730
  Receipt Date: 20180730
  Transmission Date: 20181010
  Serious: Yes (Other)
  Sender: FDA-Public Use
  Company Number: None

PATIENT
  Age: 84 Year
  Sex: Female
  Weight: 86.18 kg

DRUGS (13)
  1. FUROSEMIDE. [Concomitant]
     Active Substance: FUROSEMIDE
  2. VITAMIN C [Concomitant]
     Active Substance: ASCORBIC ACID
  3. VITAMIN D [Concomitant]
     Active Substance: CHOLECALCIFEROL
  4. HAWTHORN [Concomitant]
     Active Substance: CRATAEGUS LAEVIGATA FRUIT
  5. COQ10 [Concomitant]
     Active Substance: UBIDECARENONE
  6. GINGER. [Concomitant]
     Active Substance: GINGER
  7. MAGNESIUM [Concomitant]
     Active Substance: MAGNESIUM
  8. WARFARIN [Concomitant]
     Active Substance: WARFARIN
  9. VITAMIN E [Concomitant]
     Active Substance: .ALPHA.-TOCOPHEROL
  10. VITAMIN B [Concomitant]
     Active Substance: VITAMIN B
  11. TUMERIC [Concomitant]
     Active Substance: HERBALS\TURMERIC
  12. OXYBUTYNIN. [Suspect]
     Active Substance: OXYBUTYNIN CHLORIDE
     Indication: URINARY INCONTINENCE
     Dosage: ?          QUANTITY:1 DF DOSAGE FORM;?
     Route: 048
     Dates: start: 20180407, end: 20180420
  13. L CARNITINE [Concomitant]
     Active Substance: LEVOCARNITINE

REACTIONS (3)
  - Throat clearing [None]
  - Dysphonia [None]
  - Hypercoagulation [None]
